FAERS Safety Report 4393766-0 (Version None)
Quarter: 2004Q3

REPORT INFORMATION
  Report Type: 
  Country: None (occurrence: None)
  Receive Date: 20040706
  Receipt Date: 20040625
  Transmission Date: 20050211
  Serious: Yes (Life-Threatening)
  Sender: FDA-Public Use
  Company Number: D01200402385

PATIENT
  Sex: 0

DRUGS (9)
  1. FONDAPARINUX - SOLUTION  UNKNOWN [Suspect]
     Indication: ANGINA UNSTABLE
     Dosage: 2.5 MG QD SUBCUTANEOUS
     Route: 058
  2. FONDAPARINUX - SOLUTION  UNKNOWN [Suspect]
     Indication: MYOCARDIAL INFARCTION
     Dosage: 2.5 MG QD SUBCUTANEOUS
     Route: 058
  3. ASCAL (ACETYLSALICYLATE CALCIUM) [Concomitant]
  4. PLAVIX [Concomitant]
  5. DIOVAN [Concomitant]
  6. METOPROLOL TARTRATE [Concomitant]
  7. AGGRASTAT [Concomitant]
  8. HYDROCHLOROTHIAZIDE [Concomitant]
  9. LIPITOR [Concomitant]

REACTIONS (3)
  - CATHETER RELATED COMPLICATION [None]
  - MYOCARDIAL INFARCTION [None]
  - THROMBOSIS [None]
